FAERS Safety Report 8520219-8 (Version None)
Quarter: 2012Q3

REPORT INFORMATION
  Report Type: 
  Country: None (occurrence: None)
  Receive Date: 20120719
  Receipt Date: 20120705
  Transmission Date: 20120928
  Serious: Yes (Death, Hospitalization, Other)
  Sender: FDA-Public Use
  Company Number: US-RANBAXY-2012US-57829

PATIENT
  Sex: Female

DRUGS (3)
  1. ACCUTANE [Suspect]
     Indication: ACNE
     Dosage: UNKNOWN
     Route: 048
  2. AMNESTEEM [Suspect]
     Indication: ACNE
     Dosage: UNK
     Route: 048
     Dates: start: 20050501, end: 20051201
  3. ISOTRETINOIN [Suspect]
     Indication: ACNE
     Dosage: UNKNOWN
     Route: 048

REACTIONS (7)
  - DIARRHOEA [None]
  - FREQUENT BOWEL MOVEMENTS [None]
  - INFLAMMATORY BOWEL DISEASE [None]
  - COLITIS ULCERATIVE [None]
  - RECTAL HAEMORRHAGE [None]
  - ABDOMINAL PAIN [None]
  - PAIN [None]
